FAERS Safety Report 8696580 (Version 2)
Quarter: 2012Q4

REPORT INFORMATION
  Report Type: Report from Study
  Country: JP (occurrence: JP)
  Receive Date: 20120801
  Receipt Date: 20120914
  Transmission Date: 20130627
  Serious: Yes (Other)
  Sender: FDA-Public Use
  Company Number: JP-ASTELLAS-2012JP003270

PATIENT
  Sex: Female
  Weight: 52 kg

DRUGS (13)
  1. TACROLIMUS CAPSULES [Suspect]
     Indication: COLITIS ULCERATIVE
     Dosage: 1.5 mg, bid
     Route: 048
     Dates: start: 20110531, end: 20110604
  2. TACROLIMUS CAPSULES [Suspect]
     Dosage: 2 mg, bid
     Route: 048
     Dates: start: 20110605, end: 20110611
  3. TACROLIMUS CAPSULES [Suspect]
     Dosage: 2.5 mg, bid
     Route: 048
     Dates: start: 20110612, end: 20110628
  4. TACROLIMUS CAPSULES [Suspect]
     Dosage: 4.5 mg, Unknown/D
     Route: 048
     Dates: start: 20110629, end: 20110726
  5. TACROLIMUS CAPSULES [Suspect]
     Dosage: 2 mg, bid
     Route: 048
     Dates: start: 20110727, end: 20110830
  6. TACROLIMUS CAPSULES [Suspect]
     Dosage: 1 mg, bid
     Route: 048
     Dates: start: 20110831, end: 20111114
  7. TACROLIMUS CAPSULES [Suspect]
     Dosage: 2.5 mg, Unknown/D
     Route: 048
     Dates: start: 20111115
  8. ASACOL [Concomitant]
     Indication: COLITIS ULCERATIVE
     Dosage: 3600 mg, Unknown/D
     Route: 048
     Dates: start: 20110426
  9. GASTER [Concomitant]
     Dosage: 40 mg, Unknown/D
     Route: 048
     Dates: start: 20100614, end: 20110628
  10. TAKEPRON [Concomitant]
     Dosage: 30 mg, Unknown/D
     Route: 048
     Dates: start: 20110628
  11. BIOFERMIN [Concomitant]
     Indication: PROPHYLAXIS
     Dosage: 3000 mg, Unknown/D
     Route: 048
     Dates: start: 20100831
  12. RINDERON                           /00008501/ [Concomitant]
     Indication: COLITIS ULCERATIVE
     Dosage: 0.5 mg, Unknown/D
     Route: 054
     Dates: start: 20110215, end: 20110530
  13. IMURAN                             /00001501/ [Concomitant]
     Indication: COLITIS ULCERATIVE
     Dosage: 25 mg, Unknown/D
     Route: 048
     Dates: start: 20110322, end: 20110603

REACTIONS (1)
  - Liver disorder [Not Recovered/Not Resolved]
